FAERS Safety Report 6584274-7 (Version None)
Quarter: 2010Q1

REPORT INFORMATION
  Report Type: 
  Country: None (occurrence: None)
  Receive Date: 20100213
  Receipt Date: 20100213
  Transmission Date: 20100710
  Serious: Yes (Life-Threatening, Other)
  Sender: FDA-Public Use
  Company Number: None

PATIENT
  Age: 78 Year
  Sex: Male
  Weight: 84.369 kg

DRUGS (1)
  1. AMITRIPTYLINE HCL [Suspect]
     Indication: INSOMNIA
     Dosage: 10 MG 1 AT BEDTIME PO
     Route: 048
     Dates: start: 20090520, end: 20100205

REACTIONS (7)
  - BLISTER [None]
  - BURNING SENSATION [None]
  - HYPOAESTHESIA [None]
  - MOOD ALTERED [None]
  - PARAESTHESIA [None]
  - RASH [None]
  - SENSORY LOSS [None]
